FAERS Safety Report 24071491 (Version 1)
Quarter: 2024Q3

REPORT INFORMATION
  Report Type: Report from Study
  Country: US (occurrence: US)
  Receive Date: 20240710
  Receipt Date: 20240710
  Transmission Date: 20241016
  Serious: No
  Sender: ROCHE
  Company Number: US-ROCHE-3507591

PATIENT
  Sex: Female

DRUGS (8)
  1. EVRYSDI [Suspect]
     Active Substance: RISDIPLAM
     Indication: Spinal muscular atrophy
     Route: 050
     Dates: start: 20230615, end: 20231205
  2. NEXPLANON [Concomitant]
     Active Substance: ETONOGESTREL
  3. PEPCID [Concomitant]
     Active Substance: FAMOTIDINE
     Route: 048
  4. NEURONTIN [Concomitant]
     Active Substance: GABAPENTIN
     Dosage: START 100 MG ONCE AT NIGHT THEN INCREASE TO TWICE DAILY THEN THRICE DAILY
     Route: 048
  5. ATIVAN [Concomitant]
     Active Substance: LORAZEPAM
     Indication: Anxiety
     Route: 048
  6. NARCAN [Concomitant]
     Active Substance: NALOXONE HYDROCHLORIDE
     Route: 055
  7. DITROPAN [Concomitant]
     Active Substance: OXYBUTYNIN CHLORIDE
     Route: 048
  8. ULTRAM [Concomitant]
     Active Substance: TRAMADOL HYDROCHLORIDE
     Indication: Pain
     Route: 048

REACTIONS (1)
  - Muscular weakness [Recovered/Resolved]

NARRATIVE: CASE EVENT DATE: 20231201
